FAERS Safety Report 25392224 (Version 1)
Quarter: 2025Q2

REPORT INFORMATION
  Report Type: Report from Study
  Country: US (occurrence: US)
  Receive Date: 20250603
  Receipt Date: 20250603
  Transmission Date: 20250717
  Serious: Yes (Other)
  Sender: MALLINCKRODT
  Company Number: US-MALLINCKRODT-MNK202500965

PATIENT
  Age: 46 Year
  Sex: Female

DRUGS (2)
  1. CORTICOTROPIN [Suspect]
     Active Substance: CORTICOTROPIN
     Indication: Keratitis
     Dosage: 80 UNITS
     Route: 058
     Dates: start: 20230912
  2. CORTICOTROPIN [Suspect]
     Active Substance: CORTICOTROPIN
     Indication: Keratitis

REACTIONS (4)
  - Intervertebral disc degeneration [Unknown]
  - Rheumatoid arthritis [Not Recovered/Not Resolved]
  - Spondylitis [Unknown]
  - Sensitivity to weather change [Unknown]

NARRATIVE: CASE EVENT DATE: 20250101
